FAERS Safety Report 12258998 (Version 1)
Quarter: 2016Q2

REPORT INFORMATION
  Report Type: Spontaneous
  Country: US (occurrence: US)
  Receive Date: 20160412
  Receipt Date: 20160412
  Transmission Date: 20160815
  Serious: No
  Sender: FDA-Public Use
  Company Number: US-SA-2015SA068215

PATIENT
  Age: 86 Year
  Sex: Female
  Weight: 86.18 kg

DRUGS (5)
  1. VITAMIN D [Concomitant]
     Active Substance: CHOLECALCIFEROL
     Dosage: YEARS AGO
     Route: 065
  2. SYNTHROID [Concomitant]
     Active Substance: LEVOTHYROXINE SODIUM
     Indication: THYROID HORMONES INCREASED
     Dosage: YEARS AGO
     Route: 065
  3. ALLEGRA ALLERGY [Suspect]
     Active Substance: FEXOFENADINE HYDROCHLORIDE
     Indication: MULTIPLE ALLERGIES
     Dosage: START DATE: 21 HOURS AGO
     Route: 048
     Dates: start: 20150516, end: 20150518
  4. VITAMIN C [Concomitant]
     Active Substance: ASCORBIC ACID
     Dosage: START DATE: YEARS AGO AND DOSE: FROM FOOD
     Route: 065
  5. PRILOSEC [Concomitant]
     Active Substance: OMEPRAZOLE MAGNESIUM
     Indication: DYSPEPSIA
     Dosage: YEARS AGO
     Route: 065

REACTIONS (1)
  - Therapeutic response decreased [Unknown]
